FAERS Safety Report 17771128 (Version 4)
Quarter: 2021Q3

REPORT INFORMATION
  Report Type: Spontaneous
  Country: FR (occurrence: FR)
  Receive Date: 20200512
  Receipt Date: 20210909
  Transmission Date: 20211014
  Serious: Yes (Life-Threatening, Disabling)
  Sender: FDA-Public Use
  Company Number: FR-MYLANLABS-2020M1045669

PATIENT
  Age: 43 Year
  Sex: Male

DRUGS (3)
  1. NIVAQUINE                          /00001003/ [Suspect]
     Active Substance: CHLOROQUINE SULFATE
     Indication: CORONAVIRUS INFECTION
     Dosage: 200 MILLIGRAM, QD (2?3 CP PAR JOUR)
     Route: 048
     Dates: start: 20200325
  2. PLAQUENIL                          /00072602/ [Suspect]
     Active Substance: HYDROXYCHLOROQUINE DIPHOSPHATE
     Indication: CORONAVIRUS INFECTION
     Dosage: 2?3 CP PAR JOUR
     Route: 048
     Dates: start: 20200325
  3. AZITHROMYCIN ANHYDROUS. [Suspect]
     Active Substance: AZITHROMYCIN ANHYDROUS
     Indication: CORONAVIRUS INFECTION
     Dosage: 250 MILLIGRAM, QD
     Route: 048
     Dates: start: 20200325

REACTIONS (1)
  - Cardio-respiratory arrest [Recovering/Resolving]

NARRATIVE: CASE EVENT DATE: 20200404
